FAERS Safety Report 14349822 (Version 1)
Quarter: 2018Q1

REPORT INFORMATION
  Report Type: Spontaneous
  Country: US (occurrence: US)
  Receive Date: 20180103
  Receipt Date: 20180103
  Transmission Date: 20180509
  Serious: Yes (Other)
  Sender: FDA-Public Use
  Company Number: None

PATIENT
  Age: 83 Year
  Sex: Male
  Weight: 90 kg

DRUGS (18)
  1. MEKINIST [Suspect]
     Active Substance: TRAMETINIB DIMETHYL SULFOXIDE
     Indication: LUNG NEOPLASM MALIGNANT
     Route: 048
     Dates: start: 20170906, end: 20180102
  2. LEVOTHYROXINE. [Concomitant]
     Active Substance: LEVOTHYROXINE
  3. SALINE [Concomitant]
     Active Substance: SODIUM CHLORIDE
  4. OMEPRAZOLE. [Concomitant]
     Active Substance: OMEPRAZOLE
  5. TAFINLAR [Suspect]
     Active Substance: DABRAFENIB MESYLATE
     Indication: LUNG NEOPLASM MALIGNANT
     Route: 048
     Dates: start: 20170906, end: 20180103
  6. ALLOPURINOL. [Concomitant]
     Active Substance: ALLOPURINOL
  7. CLOPIDOGREL [Concomitant]
     Active Substance: CLOPIDOGREL BISULFATE
  8. TAFINLAR [Concomitant]
     Active Substance: DABRAFENIB MESYLATE
  9. FAMOTIDINE. [Concomitant]
     Active Substance: FAMOTIDINE
  10. PREDNISONE. [Concomitant]
     Active Substance: PREDNISONE
  11. ASPIRIN. [Concomitant]
     Active Substance: ASPIRIN
  12. BUMETANIDE. [Concomitant]
     Active Substance: BUMETANIDE
  13. GABAPENTIN. [Concomitant]
     Active Substance: GABAPENTIN
  14. IRBESARTAN. [Concomitant]
     Active Substance: IRBESARTAN
  15. TAMSULOSIN [Concomitant]
     Active Substance: TAMSULOSIN
  16. AMIODARONE [Concomitant]
     Active Substance: AMIODARONE
  17. DOCUSATE [Concomitant]
     Active Substance: DOCUSATE
  18. FINASTERIDE. [Concomitant]
     Active Substance: FINASTERIDE

REACTIONS (1)
  - Disease progression [None]
